FAERS Safety Report 6989062-5 (Version None)
Quarter: 2010Q3

REPORT INFORMATION
  Report Type: 
  Country: None (occurrence: None)
  Receive Date: 20100916
  Receipt Date: 20091014
  Transmission Date: 20110219
  Serious: Yes (Other)
  Sender: FDA-Public Use
  Company Number: US-PFIZER INC-2009233515

PATIENT
  Age: 63 Year
  Sex: Female
  Weight: 94.785 kg

DRUGS (11)
  1. LYRICA [Suspect]
     Indication: NEUROPATHY PERIPHERAL
     Dosage: 100 MG, 3X/DAY
     Dates: start: 20080722, end: 20090601
  2. NOVOLOG [Concomitant]
     Dosage: UNK
  3. LANTUS [Concomitant]
     Dosage: UNK
     Dates: start: 20080801
  4. LEVOXYL [Concomitant]
     Dosage: UNK
  5. VYTORIN [Concomitant]
     Dosage: UNK
     Dates: start: 20050101
  6. PROTONIX [Concomitant]
     Dosage: UNK
     Dates: start: 20060101
  7. VITAMIN D [Concomitant]
     Dosage: UNK
     Dates: start: 20060101
  8. LEVEMIR [Concomitant]
     Dosage: UNK
     Dates: start: 20070101, end: 20080801
  9. LEXAPRO [Concomitant]
     Dosage: UNK
     Dates: start: 20090401
  10. DIFLUCAN [Concomitant]
     Dosage: UNK
  11. LISINOPRIL [Concomitant]
     Dosage: UNK

REACTIONS (6)
  - AMNESIA [None]
  - DIABETIC NEUROPATHY [None]
  - DIZZINESS [None]
  - GAIT DISTURBANCE [None]
  - GLYCOSYLATED HAEMOGLOBIN INCREASED [None]
  - POLYNEUROPATHY [None]
